FAERS Safety Report 14770236 (Version 1)
Quarter: 2018Q2

REPORT INFORMATION
  Report Type: Spontaneous
  Country: US (occurrence: US)
  Receive Date: 20180411
  Receipt Date: 20180411
  Transmission Date: 20180711
  Serious: Yes (Other)
  Sender: FDA-Public Use
  Company Number: None

PATIENT
  Age: 20 Year
  Sex: Female

DRUGS (3)
  1. MERCAPTOPUR 50MG TABLETS [Concomitant]
     Dates: start: 20170522
  2. ENTOCORT ED 3MG DR CAPSULES [Concomitant]
     Dates: start: 20170522, end: 20170614
  3. HUMIRA [Suspect]
     Active Substance: ADALIMUMAB
     Indication: CROHN^S DISEASE
     Route: 058
     Dates: start: 20170522

REACTIONS (4)
  - Dizziness [None]
  - Fatigue [None]
  - Headache [None]
  - Chest pain [None]

NARRATIVE: CASE EVENT DATE: 20180201
